FAERS Safety Report 8571351-4 (Version None)
Quarter: 2012Q3

REPORT INFORMATION
  Report Type: 
  Country: None (occurrence: None)
  Receive Date: 20120806
  Receipt Date: 20120730
  Transmission Date: 20120928
  Serious: Yes (Hospitalization)
  Sender: FDA-Public Use
  Company Number: FR-AMGEN-FRACT2012047291

PATIENT
  Age: 55 Year
  Sex: Male
  Weight: 70 kg

DRUGS (12)
  1. OXYCODONE HCL [Concomitant]
     Indication: PAIN
     Dosage: UNK
     Route: 048
  2. PANITUMUMAB [Suspect]
     Indication: GASTROOESOPHAGEAL CANCER
     Dosage: 420 MG, UNK
     Dates: start: 20120530
  3. METHOTREXATE [Concomitant]
     Indication: GASTROOESOPHAGEAL CANCER
     Dosage: 53 MG, UNK
     Route: 042
     Dates: start: 20120529
  4. NEXIUM [Concomitant]
     Indication: ABDOMINAL PAIN UPPER
     Dosage: UNK
     Route: 048
  5. PREDNISONE TAB [Concomitant]
     Dosage: UNK
     Route: 048
  6. CACIT D3 [Concomitant]
     Indication: HYPOCALCAEMIA
     Dosage: UNK
     Route: 048
  7. DUPHALAC [Concomitant]
     Indication: CONSTIPATION
     Dosage: UNK
     Route: 048
  8. VINBLASTINE SULFATE [Concomitant]
     Indication: GASTROOESOPHAGEAL CANCER
     Dosage: 5.24 MG, UNK
     Route: 042
     Dates: start: 20120530
  9. OLMESARTAN MEDOXOMIL [Concomitant]
     Indication: HYPERTENSION
     Dosage: UNK
     Route: 048
  10. DOXORUBICIN HYDROCHLORIDE [Concomitant]
     Indication: GASTROOESOPHAGEAL CANCER
     Dosage: 53 MG, UNK
     Route: 042
     Dates: start: 20120530
  11. CISPLATIN [Concomitant]
     Indication: GASTROOESOPHAGEAL CANCER
     Dosage: 123 MG, UNK
     Route: 042
     Dates: start: 20120530
  12. RYTHMOL [Concomitant]
     Indication: ARRHYTHMIA
     Dosage: UNK
     Route: 048

REACTIONS (1)
  - FEBRILE BONE MARROW APLASIA [None]
